FAERS Safety Report 10113706 (Version 2)
Quarter: 2015Q1

REPORT INFORMATION
  Report Type: Other
  Country: US (occurrence: US)
  Receive Date: 20140425
  Receipt Date: 20150219
  Transmission Date: 20150720
  Serious: Yes (Hospitalization, Other)
  Sender: FDA-Public Use
  Company Number: US-GSKPPD-2014GSK012743

PATIENT
  Age: 74 Year
  Sex: Male

DRUGS (6)
  1. AVANDIA [Suspect]
     Active Substance: ROSIGLITAZONE MALEATE
     Indication: DIABETES MELLITUS
     Dosage: DATES OF AVANDIA USE COULD NOT BE CONFIRMED IN RECORDS REVIEWED
     Route: 048
  2. SPIRONOLACTONE. [Concomitant]
     Active Substance: SPIRONOLACTONE
  3. CARVEDILOL. [Concomitant]
     Active Substance: CARVEDILOL
  4. DIGOXIN. [Concomitant]
     Active Substance: DIGOXIN
  5. ASPIRIN. [Concomitant]
     Active Substance: ASPIRIN
  6. TRANDOLAPRIL. [Concomitant]
     Active Substance: TRANDOLAPRIL

REACTIONS (2)
  - Cardiac failure congestive [Recovered/Resolved]
  - Myocardial infarction [Unknown]

NARRATIVE: CASE EVENT DATE: 20031129
